FAERS Safety Report 15467589 (Version 1)
Quarter: 2018Q4

REPORT INFORMATION
  Report Type: Other
  Country: US (occurrence: US)
  Receive Date: 20181005
  Receipt Date: 20181005
  Transmission Date: 20190204
  Serious: No
  Sender: FDA-Public Use
  Company Number: US-ALEMBIC PHARMACUETICALS LIMITED-2018SCAL000704

PATIENT

DRUGS (1)
  1. FLUOXETINE HYDROCHLORIDE. [Suspect]
     Active Substance: FLUOXETINE HYDROCHLORIDE
     Indication: DEPRESSION
     Dosage: 40 MILLIGRAM

REACTIONS (9)
  - Product substitution issue [Unknown]
  - Depression [Unknown]
  - Anxiety [Unknown]
  - Feeling of despair [Unknown]
  - Irritability [Unknown]
  - Insomnia [Unknown]
  - Crying [Unknown]
  - Personality change [Unknown]
  - Confusional state [Unknown]
